FAERS Safety Report 7804578-7 (Version None)
Quarter: 2011Q4

REPORT INFORMATION
  Report Type: 
  Country: None (occurrence: None)
  Receive Date: 20111010
  Receipt Date: 20111006
  Transmission Date: 20120403
  Serious: Yes (Other)
  Sender: FDA-Public Use
  Company Number: NL-PFIZER INC-2011075652

PATIENT
  Age: 41 Year
  Sex: Female
  Weight: 66 kg

DRUGS (3)
  1. VARENICLINE TARTRATE [Suspect]
     Dosage: 1 MG, 1X/DAY
  2. TRAZODONE HCL [Concomitant]
     Dosage: 100 MG, 2X/DAY
     Dates: start: 20110306
  3. VARENICLINE TARTRATE [Suspect]
     Indication: SMOKING CESSATION THERAPY
     Dosage: 1 MG, 2X/DAY
     Dates: start: 20110207, end: 20110228

REACTIONS (6)
  - AGGRESSION [None]
  - INTENTIONAL SELF-INJURY [None]
  - SKIN DISORDER [None]
  - SLEEP DISORDER [None]
  - NAUSEA [None]
  - EMOTIONAL POVERTY [None]
